FAERS Safety Report 8084030-7 (Version None)
Quarter: 2012Q1

REPORT INFORMATION
  Report Type: 
  Country: None (occurrence: None)
  Receive Date: 20120128
  Receipt Date: 20110216
  Transmission Date: 20120608
  Serious: No
  Sender: FDA-Public Use
  Company Number: US-ABBOTT-11P-163-0701190-00

PATIENT
  Sex: Female
  Weight: 83.99 kg

DRUGS (3)
  1. HUMIRA [Suspect]
     Indication: CROHN'S DISEASE
     Dates: start: 20101101
  2. CYMBALTA [Concomitant]
     Indication: DEPRESSION
  3. KLONOPIN [Concomitant]
     Indication: ANXIETY

REACTIONS (12)
  - OVERDOSE [None]
  - DRUG INEFFECTIVE [None]
  - NAUSEA [None]
  - CROHN'S DISEASE [None]
  - PAIN [None]
  - MUSCULOSKELETAL STIFFNESS [None]
  - DIARRHOEA [None]
  - VOMITING [None]
  - INJECTION SITE PAIN [None]
  - FREQUENT BOWEL MOVEMENTS [None]
  - PAIN IN EXTREMITY [None]
  - ABASIA [None]
